FAERS Safety Report 12183359 (Version 1)
Quarter: 2016Q1

REPORT INFORMATION
  Report Type: Spontaneous
  Country: KR (occurrence: KR)
  Receive Date: 20160316
  Receipt Date: 20160316
  Transmission Date: 20160526
  Serious: Yes (Hospitalization)
  Sender: FDA-Public Use
  Company Number: KR-BAYER-2016-049010

PATIENT
  Age: 74 Year
  Sex: Male

DRUGS (1)
  1. IOPROMIDE [Suspect]
     Active Substance: IOPROMIDE
     Indication: PLEURAL EFFUSION

REACTIONS (4)
  - Kounis syndrome [None]
  - Cardiac arrest [None]
  - Coma [None]
  - Electrocardiogram ST segment elevation [None]
